FAERS Safety Report 24319850 (Version 2)
Quarter: 2024Q4

REPORT INFORMATION
  Report Type: Report from Study
  Country: US (occurrence: US)
  Receive Date: 20240914
  Receipt Date: 20241009
  Transmission Date: 20250115
  Serious: Yes (Hospitalization, Other)
  Sender: ABBVIE
  Company Number: US-ABBVIE-5879058

PATIENT
  Sex: Male

DRUGS (4)
  1. SKYRIZI [Suspect]
     Active Substance: RISANKIZUMAB-RZAA
     Indication: Product used for unknown indication
     Route: 058
     Dates: start: 20240822
  2. RINVOQ [Suspect]
     Active Substance: UPADACITINIB
     Indication: Crohn^s disease
     Route: 048
     Dates: start: 20230701
  3. RINVOQ [Suspect]
     Active Substance: UPADACITINIB
     Indication: Crohn^s disease
     Route: 048
  4. PREDNISONE [Concomitant]
     Active Substance: PREDNISONE
     Indication: Product used for unknown indication
     Route: 065

REACTIONS (9)
  - Abscess [Recovering/Resolving]
  - Post procedural haemorrhage [Recovering/Resolving]
  - Crohn^s disease [Unknown]
  - Therapeutic product effect incomplete [Unknown]
  - Fistula [Recovering/Resolving]
  - Fluid retention [Recovered/Resolved]
  - Fluid retention [Recovering/Resolving]
  - Infection [Unknown]
  - Pain [Unknown]

NARRATIVE: CASE EVENT DATE: 20240101
